FAERS Safety Report 6119709-7 (Version None)
Quarter: 2009Q1

REPORT INFORMATION
  Report Type: 
  Country: None (occurrence: None)
  Receive Date: 20090316
  Receipt Date: 20090216
  Transmission Date: 20090719
  Serious: Yes (Death)
  Sender: FDA-Public Use
  Company Number: HU-PFIZER INC-2008157431

PATIENT

DRUGS (3)
  1. BLINDED *PLACEBO [Suspect]
     Indication: SMALL CELL LUNG CANCER METASTATIC
     Dosage: 37.5 MG, 1X/DAY
     Route: 048
     Dates: start: 20081016, end: 20081217
  2. BLINDED SUNITINIB MALATE [Suspect]
     Indication: SMALL CELL LUNG CANCER METASTATIC
     Dosage: 37.5 MG, 1X/DAY
     Route: 048
     Dates: start: 20081016, end: 20081217
  3. *ERLOTINIB [Suspect]
     Indication: SMALL CELL LUNG CANCER METASTATIC
     Dosage: 150MG, 1XDAY
     Route: 048
     Dates: start: 20081016, end: 20081217

REACTIONS (2)
  - DISEASE PROGRESSION [None]
  - SMALL CELL LUNG CANCER METASTATIC [None]
